FAERS Safety Report 9080197 (Version 1)
Quarter: 2013Q1

REPORT INFORMATION
  Report Type: Spontaneous
  Country: US (occurrence: US)
  Receive Date: 20130130
  Receipt Date: 20130130
  Transmission Date: 20140127
  Serious: No
  Sender: FDA-Public Use
  Company Number: US-BAYER-2013-005884

PATIENT
  Sex: Male

DRUGS (5)
  1. BETASERON [Suspect]
     Indication: MULTIPLE SCLEROSIS
     Dosage: 0.25 MG, QOD
     Route: 058
     Dates: end: 201211
  2. AMLODIPINE [Concomitant]
  3. RAMIPRIL [Concomitant]
  4. LISINOPRIL [Concomitant]
  5. MULTIVITAMIN [Concomitant]
     Dosage: UNK

REACTIONS (2)
  - Faecal incontinence [None]
  - Skin odour abnormal [None]
